FAERS Safety Report 25433772 (Version 1)
Quarter: 2025Q2

REPORT INFORMATION
  Report Type: Spontaneous
  Country: IN (occurrence: IN)
  Receive Date: 20250613
  Receipt Date: 20250613
  Transmission Date: 20250717
  Serious: Yes (Hospitalization)
  Sender: ROCHE
  Company Number: IN-ROCHE-10000308325

PATIENT
  Age: 49 Year
  Sex: Male

DRUGS (9)
  1. RITUXIMAB [Suspect]
     Active Substance: RITUXIMAB
     Indication: Progressive multiple sclerosis
     Route: 042
  2. REMDESIVIR [Concomitant]
     Active Substance: REMDESIVIR
  3. METHYLPREDNISOLONE [Concomitant]
     Active Substance: METHYLPREDNISOLONE
  4. NINTEDANIB [Concomitant]
     Active Substance: NINTEDANIB
  5. BUDESONIDE [Concomitant]
     Active Substance: BUDESONIDE
  6. ACETAMINOPHEN [Concomitant]
     Active Substance: ACETAMINOPHEN
  7. MEFENAMIC ACID [Concomitant]
     Active Substance: MEFENAMIC ACID
  8. NAPROXEN [Concomitant]
     Active Substance: NAPROXEN
  9. FAVIPIRAVIR [Concomitant]
     Active Substance: FAVIPIRAVIR

REACTIONS (1)
  - COVID-19 [Recovered/Resolved]
